FAERS Safety Report 9280052 (Version 1)
Quarter: 2013Q2

REPORT INFORMATION
  Report Type: Spontaneous
  Country: CN (occurrence: CN)
  Receive Date: 20130509
  Receipt Date: 20130509
  Transmission Date: 20140414
  Serious: Yes (Other)
  Sender: FDA-Public Use
  Company Number: CN-JNJFOC-20130415956

PATIENT
  Sex: 0

DRUGS (2)
  1. RISPERDAL [Suspect]
     Indication: MENTAL DISORDER
     Route: 048
  2. HALOPERIDOL [Suspect]
     Indication: MENTAL DISORDER
     Route: 065

REACTIONS (10)
  - Tardive dyskinesia [Unknown]
  - Arrhythmia [Unknown]
  - Altered state of consciousness [Unknown]
  - Extrapyramidal disorder [Unknown]
  - Weight increased [Unknown]
  - Salivary hypersecretion [Unknown]
  - Vision blurred [Unknown]
  - Liver function test abnormal [Unknown]
  - Lethargy [Unknown]
  - Constipation [Unknown]
